FAERS Safety Report 17728621 (Version 1)
Quarter: 2020Q2

REPORT INFORMATION
  Report Type: Spontaneous
  Country: US (occurrence: US)
  Receive Date: 20200429
  Receipt Date: 20200429
  Transmission Date: 20200714
  Serious: No
  Sender: FDA-Public Use
  Company Number: None

PATIENT
  Age: 16 Year
  Sex: Male

DRUGS (1)
  1. TALTZ [Suspect]
     Active Substance: IXEKIZUMAB
     Dosage: OTHER
     Route: 058

REACTIONS (6)
  - Vomiting [None]
  - Haemorrhage [None]
  - Malnutrition [None]
  - Diarrhoea [None]
  - Weight decreased [None]
  - Large intestinal ulcer [None]

NARRATIVE: CASE EVENT DATE: 20200412
